FAERS Safety Report 5465062-1 (Version None)
Quarter: 2007Q3

REPORT INFORMATION
  Report Type: 
  Country: None (occurrence: None)
  Receive Date: 20070820
  Receipt Date: 20070521
  Transmission Date: 20080115
  Serious: No
  Sender: FDA-Public Use
  Company Number: TPA2007A01119

PATIENT
  Age: 72 Year
  Sex: Male
  Weight: 70.7611 kg

DRUGS (4)
  1. ROZEREM [Suspect]
     Indication: INITIAL INSOMNIA
     Dosage: 8 MG, HS, PER ORAL
     Route: 048
     Dates: start: 20070501, end: 20070501
  2. UNK ALPHA BLOCKER (ALL OTHER THERAPEUTIC PRODUCTS) [Concomitant]
  3. PROSCAR [Concomitant]
  4. HYTRIN [Concomitant]

REACTIONS (1)
  - DRUG INEFFECTIVE [None]
